FAERS Safety Report 6975712-6 (Version None)
Quarter: 2010Q3

REPORT INFORMATION
  Report Type: 
  Country: None (occurrence: None)
  Receive Date: 20100910
  Receipt Date: 20090331
  Transmission Date: 20110219
  Serious: No
  Sender: FDA-Public Use
  Company Number: US-WYE-H08789009

PATIENT
  Sex: Female
  Weight: 81.72 kg

DRUGS (5)
  1. PRISTIQ [Suspect]
     Indication: DEPRESSION
     Route: 048
     Dates: start: 20090301
  2. XANAX [Concomitant]
  3. SYNTHROID [Concomitant]
  4. GEODON [Concomitant]
  5. ATENOLOL [Concomitant]

REACTIONS (3)
  - FEELING HOT [None]
  - FLUSHING [None]
  - NAUSEA [None]
